FAERS Safety Report 4897867-X (Version None)
Quarter: 2006Q1

REPORT INFORMATION
  Report Type: 
  Country: None (occurrence: None)
  Receive Date: 20060201
  Receipt Date: 20060124
  Transmission Date: 20060701
  Serious: Yes (Hospitalization)
  Sender: FDA-Public Use
  Company Number: JP-JPN-A200600313

PATIENT
  Sex: Male
  Weight: 68 kg

DRUGS (16)
  1. VALTREX [Suspect]
     Indication: HERPES ZOSTER
     Dosage: 500MG TWICE PER DAY
     Route: 048
     Dates: start: 20050209, end: 20050212
  2. RADEN [Concomitant]
     Indication: GASTRITIS
     Dosage: 150MG PER DAY
     Route: 048
  3. NIFELAT L [Concomitant]
     Indication: HYPERTENSION
     Dosage: 20MG TWICE PER DAY
     Route: 048
  4. D-ALFA [Concomitant]
     Indication: HYPERPARATHYROIDISM
     Dosage: .5MCG PER DAY
     Route: 048
  5. BUFFERIN [Concomitant]
     Indication: CEREBRAL INFARCTION
     Dosage: 81MG PER DAY
     Route: 048
  6. ALOSENN [Concomitant]
     Indication: CONSTIPATION
     Dosage: 1UNIT PER DAY
     Route: 048
  7. SENNOSIDE [Concomitant]
     Indication: CONSTIPATION
     Dosage: 1TAB PER DAY
     Route: 048
  8. GASCON [Concomitant]
     Indication: CONSTIPATION
     Dosage: 1TAB THREE TIMES PER DAY
     Route: 048
  9. NORVASC [Concomitant]
     Indication: HYPERTENSION
     Dosage: 2.5MG PER DAY
     Route: 048
  10. SELMALEN [Concomitant]
     Indication: PRURITUS
     Dosage: 1TAB PER DAY
     Route: 048
  11. NU-LOTAN [Concomitant]
     Indication: HYPERTENSION
     Dosage: 25MG PER DAY
     Route: 048
  12. ADONA (AC-17) [Concomitant]
     Dosage: 30MG THREE TIMES PER DAY
     Route: 048
  13. NICHI E NATE [Concomitant]
     Dosage: 100MG THREE TIMES PER DAY
     Route: 048
  14. GLORIAMIN [Concomitant]
     Indication: GASTRITIS
     Dosage: 3UNIT THREE TIMES PER DAY
     Route: 048
  15. LAC B [Concomitant]
     Dosage: 3 PER DAY
     Route: 048
  16. CALTAN [Concomitant]
     Indication: HYPERPHOSPHATAEMIA
     Dosage: 18 PER DAY
     Route: 048

REACTIONS (8)
  - CEREBRAL INFARCTION [None]
  - DIZZINESS [None]
  - DYSARTHRIA [None]
  - DYSPNOEA [None]
  - LOGORRHOEA [None]
  - NAUSEA [None]
  - VISION BLURRED [None]
  - VOMITING [None]
